FAERS Safety Report 25159515 (Version 3)
Quarter: 2025Q3

REPORT INFORMATION
  Report Type: Spontaneous
  Country: JP (occurrence: JP)
  Receive Date: 20250404
  Receipt Date: 20250702
  Transmission Date: 20251021
  Serious: Yes (Death, Other)
  Sender: GLAXOSMITHKLINE
  Company Number: JP-GSKJP-JP2025JPN038621AA

PATIENT
  Age: 44 Year
  Sex: Male

DRUGS (10)
  1. VALTREX [Suspect]
     Active Substance: VALACYCLOVIR HYDROCHLORIDE
     Indication: Varicella
  2. ZOVIRAX [Suspect]
     Active Substance: ACYCLOVIR
     Dosage: 1500 MG, QD (7.5 MG/KG, EVERY 8 HOURS)
  3. ZOVIRAX [Suspect]
     Active Substance: ACYCLOVIR
     Dosage: 1950 MG, QD (10 MG/KG, EVERY 8 HOURS)
  4. ZOVIRAX [Suspect]
     Active Substance: ACYCLOVIR
     Dosage: 1300 MG, QD (10 MG/KG, EVERY 12 HOURS)
  5. PREDNISOLONE [Concomitant]
     Active Substance: PREDNISOLONE
     Dosage: 30 MG, QD
  6. PREDNISOLONE [Concomitant]
     Active Substance: PREDNISOLONE
     Dosage: 15 MG, QD
  7. CYCLOSPORINE [Concomitant]
     Active Substance: CYCLOSPORINE
     Dosage: 75 MG, QD
  8. SULFAMETHOXAZOLE\TRIMETHOPRIM [Concomitant]
     Active Substance: SULFAMETHOXAZOLE\TRIMETHOPRIM
  9. VONOPRAZAN [Concomitant]
     Active Substance: VONOPRAZAN
  10. ATORVASTATIN [Concomitant]
     Active Substance: ATORVASTATIN

REACTIONS (16)
  - Multiple organ dysfunction syndrome [Fatal]
  - Disseminated varicella zoster virus infection [Unknown]
  - Disseminated intravascular coagulation [Unknown]
  - Varicella zoster pneumonia [Unknown]
  - Pneumonia bacterial [Unknown]
  - Hypoxia [Unknown]
  - Renal impairment [Unknown]
  - Sepsis [Unknown]
  - Hepatitis viral [Unknown]
  - Tubulointerstitial nephritis [Unknown]
  - Necrosis [Unknown]
  - Haemophagocytic lymphohistiocytosis [Unknown]
  - Abdominal pain [Unknown]
  - Infection [Unknown]
  - Haemorrhagic diathesis [Unknown]
  - Endothelial dysfunction [Unknown]
